FAERS Safety Report 10413880 (Version 1)
Quarter: 2014Q3

REPORT INFORMATION
  Report Type: Spontaneous
  Country: BR (occurrence: None)
  Receive Date: 20140825
  Receipt Date: 20140825
  Transmission Date: 20150326
  Serious: Yes (Hospitalization, Other)
  Sender: FDA-Public Use
  Company Number: AUR-APL-2014-08958

PATIENT
  Age: 80 Year
  Sex: Male

DRUGS (10)
  1. SEROQUEL XR [Suspect]
     Active Substance: QUETIAPINE FUMARATE
     Indication: HALLUCINATION
     Route: 048
     Dates: start: 2013
  2. ENALAPRIL MALEATE (ENALAPRIL MALEATE) [Concomitant]
     Active Substance: ENALAPRIL MALEATE
  3. ATENOLOL 50 MG (ATENOLOL) [Suspect]
     Active Substance: ATENOLOL
     Indication: HYPERTENSION
  4. METFORMIN [Suspect]
     Active Substance: METFORMIN HYDROCHLORIDE
     Indication: GLUCOSE TOLERANCE IMPAIRED
     Route: 048
  5. LIPITOR [Concomitant]
     Active Substance: ATORVASTATIN CALCIUM
  6. CLOPIDOGREL [Concomitant]
     Active Substance: CLOPIDOGREL BISULFATE
  7. RANITIDINE [Concomitant]
     Active Substance: RANITIDINE\RANITIDINE HYDROCHLORIDE
  8. EQUILID (SULPIRIDE) [Concomitant]
  9. AMLODIPINE BESYLATE (AMLODIPINE BESILATE) [Concomitant]
     Active Substance: AMLODIPINE BESYLATE
  10. ATENSINA (CLONIDINE HYDROCHLORIDE) [Concomitant]

REACTIONS (10)
  - Hallucination [None]
  - Choking [None]
  - Small intestinal haemorrhage [None]
  - Heart rate irregular [None]
  - Off label use [None]
  - Speech disorder [None]
  - Ischaemic stroke [None]
  - Weight decreased [None]
  - Balance disorder [None]
  - Dysphagia [None]

NARRATIVE: CASE EVENT DATE: 2007
